FAERS Safety Report 9236929 (Version 1)
Quarter: 2013Q2

REPORT INFORMATION
  Report Type: Spontaneous
  Country: IT (occurrence: IT)
  Receive Date: 20130417
  Receipt Date: 20130417
  Transmission Date: 20140414
  Serious: Yes (Hospitalization)
  Sender: FDA-Public Use
  Company Number: PHHY2013IT035838

PATIENT
  Sex: Male

DRUGS (3)
  1. TEGRETOL [Suspect]
     Indication: WITHDRAWAL SYNDROME
     Dosage: 10 DF (200MG), UNK
     Route: 048
     Dates: start: 20130320, end: 20130320
  2. VALIUM [Suspect]
     Dosage: 20 ML, UNK
     Route: 048
     Dates: start: 20130320, end: 20130320
  3. HALCION [Suspect]
     Indication: WITHDRAWAL SYNDROME
     Dosage: 20 DF, UNK
     Route: 048
     Dates: start: 20130320, end: 20130320

REACTIONS (4)
  - Psychomotor retardation [Recovered/Resolved]
  - Asthenia [Recovered/Resolved]
  - Dysarthria [Recovered/Resolved]
  - Vomiting [Recovered/Resolved]
